FAERS Safety Report 9999531 (Version 1)
Quarter: 2014Q1

REPORT INFORMATION
  Report Type: Spontaneous
  Country: GB (occurrence: GB)
  Receive Date: 20140312
  Receipt Date: 20140312
  Transmission Date: 20141002
  Serious: Yes (Other)
  Sender: FDA-Public Use
  Company Number: GB-TEVA-466553ISR

PATIENT
  Age: 82 Year
  Sex: Male

DRUGS (1)
  1. TAMSULOSIN [Suspect]
     Route: 065

REACTIONS (1)
  - Pleural effusion [Recovered/Resolved]
